FAERS Safety Report 20604056 (Version 1)
Quarter: 2022Q1

REPORT INFORMATION
  Report Type: Spontaneous
  Country: US (occurrence: US)
  Receive Date: 20220316
  Receipt Date: 20220316
  Transmission Date: 20220423
  Serious: No
  Sender: FDA-Public Use
  Company Number: US-SA-SAC20220309001476

PATIENT
  Sex: Female

DRUGS (7)
  1. DUPIXENT [Suspect]
     Active Substance: DUPILUMAB
     Indication: Dermatitis atopic
     Route: 058
     Dates: start: 202111
  2. TYLENOL [Concomitant]
     Active Substance: ACETAMINOPHEN
  3. ADVIL [Concomitant]
     Active Substance: IBUPROFEN
  4. ACYCLOVIR [Concomitant]
     Active Substance: ACYCLOVIR
  5. LEVONORGESTREL [Concomitant]
     Active Substance: LEVONORGESTREL
  6. MOXIFLOXACIN;TRIAMCINOLONE [Concomitant]
  7. PFIZER-BIONTECH COVID-19 VACCINE [Concomitant]
     Active Substance: TOZINAMERAN

REACTIONS (2)
  - Eye irritation [Recovering/Resolving]
  - Oral herpes [Recovering/Resolving]
